FAERS Safety Report 7074505-1 (Version None)
Quarter: 2010Q4

REPORT INFORMATION
  Report Type: 
  Country: None (occurrence: None)
  Receive Date: 20101029
  Receipt Date: 20101027
  Transmission Date: 20110411
  Serious: Yes (Death)
  Sender: FDA-Public Use
  Company Number: PHHY2010US72555

PATIENT
  Sex: Female

DRUGS (2)
  1. RECLAST [Suspect]
     Indication: SENILE OSTEOPOROSIS
  2. RECLAST [Suspect]
     Indication: OSTEOPOROSIS POSTMENOPAUSAL

REACTIONS (1)
  - DEATH [None]
